FAERS Safety Report 20704201 (Version 2)
Quarter: 2022Q2

REPORT INFORMATION
  Report Type: Other
  Country: US (occurrence: None)
  Receive Date: 20220413
  Receipt Date: 20220624
  Transmission Date: 20220720
  Serious: Yes (Hospitalization)
  Sender: FDA-Public Use
  Company Number: US-ROCHE-3072297

PATIENT
  Age: 36 Year
  Sex: Female

DRUGS (1)
  1. OCREVUS [Suspect]
     Active Substance: OCRELIZUMAB
     Indication: Relapsing-remitting multiple sclerosis
     Dosage: 300 MG AT DAY 0 AND 15, THEN 600 MG EVERY 6 MONTH?DOT: 07/MAY/2021, 06/NOV/2021, 29/APR/2020, 06/DEC
     Route: 042
     Dates: start: 20191206

REACTIONS (8)
  - COVID-19 pneumonia [Recovered/Resolved]
  - Headache [Unknown]
  - Back pain [Unknown]
  - Heart rate increased [Unknown]
  - Arthralgia [Unknown]
  - Myalgia [Unknown]
  - Nausea [Unknown]
  - Acute respiratory failure [Unknown]

NARRATIVE: CASE EVENT DATE: 20220109
